FAERS Safety Report 21200214 (Version 1)
Quarter: 2022Q3

REPORT INFORMATION
  Report Type: Spontaneous
  Country: US (occurrence: None)
  Receive Date: 20220811
  Receipt Date: 20220811
  Transmission Date: 20221026
  Serious: No
  Sender: FDA-Public Use
  Company Number: 2022A210056

PATIENT
  Sex: Female
  Weight: 59 kg

DRUGS (1)
  1. SYMBICORT [Suspect]
     Active Substance: BUDESONIDE\FORMOTEROL FUMARATE DIHYDRATE
     Indication: Asthma
     Dosage: SYMBICORT 160/4.5, 120 INHALATION INHALER, 2 PUFFS, TWICE DAILY.
     Route: 055

REACTIONS (4)
  - Skin wrinkling [Unknown]
  - Product dose omission issue [Unknown]
  - Intentional product use issue [Unknown]
  - Device malfunction [Unknown]
